FAERS Safety Report 5376509-3 (Version None)
Quarter: 2007Q3

REPORT INFORMATION
  Report Type: 
  Country: None (occurrence: None)
  Receive Date: 20070702
  Receipt Date: 20070625
  Transmission Date: 20080115
  Serious: Yes (Life-Threatening)
  Sender: FDA-Public Use
  Company Number: ES-SHR-ES-2007-023652

PATIENT
  Age: 53 Year
  Sex: Female
  Weight: 70 kg

DRUGS (1)
  1. ULTRAVIST / CLAROGRAF [Suspect]
     Dosage: 300 MG, 1 DOSE
     Route: 065
     Dates: start: 20070319, end: 20070319

REACTIONS (1)
  - ANAPHYLACTIC SHOCK [None]
